FAERS Safety Report 8215668 (Version 7)
Quarter: 2013Q2

REPORT INFORMATION
  Report Type: Spontaneous
  Country: US (occurrence: US)
  Receive Date: 20111031
  Receipt Date: 20130405
  Transmission Date: 20140414
  Serious: Yes (Hospitalization, Congenital Anomaly)
  Sender: FDA-Public Use
  Company Number: US-GLAXOSMITHKLINE-A0951257A

PATIENT
  Age: 0 Year
  Sex: Male
  Weight: 4 kg

DRUGS (5)
  1. PAXIL CR [Suspect]
     Indication: DEPRESSION
     Dosage: 25MG AT NIGHT
     Route: 064
     Dates: start: 20030506
  2. PAXIL [Suspect]
     Indication: DEPRESSION
     Dosage: 10MG PER DAY
     Route: 064
     Dates: start: 2003, end: 2004
  3. PRENATAL VITAMINS [Concomitant]
     Route: 064
  4. IRON SUPPLEMENTS [Concomitant]
     Route: 064
  5. ZITHROMAX [Concomitant]
     Indication: CHLAMYDIAL INFECTION
     Dosage: 1G SINGLE DOSE
     Dates: start: 200308, end: 200308

REACTIONS (2)
  - Fallot^s tetralogy [Unknown]
  - Foetal exposure during pregnancy [Unknown]
